FAERS Safety Report 6029270-3 (Version None)
Quarter: 2009Q1

REPORT INFORMATION
  Report Type: 
  Country: None (occurrence: None)
  Receive Date: 20090106
  Receipt Date: 20081221
  Transmission Date: 20090719
  Serious: No
  Sender: FDA-Public Use
  Company Number: US-B.I. PHARMACEUTICALS,INC./RIDGEFIELD-2008-BP-19039BP

PATIENT
  Sex: Female

DRUGS (4)
  1. ZANTAC 75 [Suspect]
     Indication: DYSPEPSIA
     Dosage: 75MG
     Route: 048
     Dates: start: 20081220
  2. PAXIL [Concomitant]
     Indication: DEPRESSION
  3. PROLIXIN [Concomitant]
  4. COGENTIN [Concomitant]
     Indication: PROPHYLAXIS

REACTIONS (1)
  - ABDOMINAL PAIN UPPER [None]
